FAERS Safety Report 6446095-5 (Version None)
Quarter: 2009Q4

REPORT INFORMATION
  Report Type: 
  Country: None (occurrence: None)
  Receive Date: 20091119
  Receipt Date: 20091111
  Transmission Date: 20100525
  Serious: Yes (Other)
  Sender: FDA-Public Use
  Company Number: ES-JNJFOC-20091103309

PATIENT
  Sex: Male

DRUGS (6)
  1. TAVANIC [Suspect]
     Indication: BRONCHITIS
     Route: 048
  2. DILUTOL HTA [Concomitant]
     Route: 065
  3. ISCOVER [Concomitant]
     Route: 065
  4. OMNIC [Concomitant]
     Route: 065
  5. SALAZOPYRIN [Concomitant]
     Route: 065
  6. AVIDART [Concomitant]
     Route: 065

REACTIONS (3)
  - AGGRESSION [None]
  - DISORIENTATION [None]
  - RESTLESSNESS [None]
